FAERS Safety Report 9887318 (Version 1)
Quarter: 2014Q1

REPORT INFORMATION
  Report Type: Spontaneous
  Country: PL (occurrence: PL)
  Receive Date: 20140211
  Receipt Date: 20140211
  Transmission Date: 20141002
  Serious: Yes (Other)
  Sender: FDA-Public Use
  Company Number: PL-ROCHE-1344834

PATIENT
  Age: 46 Year
  Sex: Male

DRUGS (1)
  1. GANCICLOVIR [Suspect]
     Indication: HUMAN HERPESVIRUS 6 INFECTION
     Route: 065

REACTIONS (2)
  - Cystitis haemorrhagic [Recovering/Resolving]
  - Adenovirus infection [Recovering/Resolving]
